FAERS Safety Report 6086851-9 (Version None)
Quarter: 2009Q1

REPORT INFORMATION
  Report Type: 
  Country: None (occurrence: None)
  Receive Date: 20090217
  Receipt Date: 20080923
  Transmission Date: 20090719
  Serious: Yes (Hospitalization)
  Sender: FDA-Public Use
  Company Number: MC200800458

PATIENT
  Sex: Female

DRUGS (1)
  1. ANGIOMAX [Suspect]
     Indication: PERCUTANEOUS CORONARY INTERVENTION

REACTIONS (1)
  - CORONARY ARTERY THROMBOSIS [None]
